FAERS Safety Report 9461481 (Version 1)
Quarter: 2013Q3

REPORT INFORMATION
  Report Type: Spontaneous
  Country: JP (occurrence: None)
  Receive Date: 20130813
  Receipt Date: 20130813
  Transmission Date: 20140515
  Serious: Yes (Hospitalization, Other)
  Sender: FDA-Public Use
  Company Number: 2013-335

PATIENT
  Age: 46 Year
  Sex: Male

DRUGS (3)
  1. CLOZAPINE [Suspect]
     Indication: SCHIZOPHRENIA, PARANOID TYPE
     Route: 048
  2. LITHIUM CARBONATE (LITHIUM CARBONATE) [Concomitant]
  3. SENNOSIDE (SENNOSIDE A+B CALCIUM) [Concomitant]

REACTIONS (10)
  - Large intestine perforation [None]
  - Appendicitis [None]
  - Peritonitis [None]
  - Impaired healing [None]
  - Intestinal obstruction [None]
  - Deep vein thrombosis [None]
  - Delirium [None]
  - Agitation [None]
  - Delusion [None]
  - Hallucination [None]
